FAERS Safety Report 10640977 (Version 1)
Quarter: 2014Q4

REPORT INFORMATION
  Report Type: Spontaneous
  Country: US (occurrence: US)
  Receive Date: 20141209
  Receipt Date: 20141209
  Transmission Date: 20150529
  Serious: Yes (Other)
  Sender: FDA-Public Use
  Company Number: US-RB-070907-14

PATIENT
  Age: 16 Year
  Sex: Male

DRUGS (1)
  1. MUCINEX DM MAXIMUM STRENGTH [Suspect]
     Active Substance: DEXTROMETHORPHAN HYDROBROMIDE\GUAIFENESIN
     Indication: PRODUCT USED FOR UNKNOWN INDICATION
     Dosage: INGESTED 12 PRODUCT TABLETS INTENTIONALLY ON 29-NOV-2014
     Route: 048
     Dates: start: 20141129

REACTIONS (2)
  - Intentional overdose [Unknown]
  - No adverse event [Unknown]

NARRATIVE: CASE EVENT DATE: 20141129
